FAERS Safety Report 24770378 (Version 1)
Quarter: 2024Q4

REPORT INFORMATION
  Report Type: Spontaneous
  Country: CH (occurrence: CH)
  Receive Date: 20241224
  Receipt Date: 20241224
  Transmission Date: 20250115
  Serious: Yes (Other)
  Sender: NOVARTIS
  Company Number: None

PATIENT
  Age: 46 Year
  Sex: Female

DRUGS (8)
  1. ACETAMINOPHEN [Suspect]
     Active Substance: ACETAMINOPHEN
     Indication: Product used for unknown indication
     Dosage: UNK (8G/2-3 JOURS)
     Route: 065
  2. COARTEM [Suspect]
     Active Substance: ARTEMETHER\LUMEFANTRINE
     Indication: Product used for unknown indication
     Dosage: 1 DOSAGE FORM, Q12H
     Route: 065
     Dates: start: 20241109, end: 20241112
  3. HERBALS [Suspect]
     Active Substance: HERBALS
     Indication: Product used for unknown indication
     Dosage: UNK (FOR 6 WEEKS)
     Route: 065
  4. MEFLOQUINE [Suspect]
     Active Substance: MEFLOQUINE
     Indication: Product used for unknown indication
     Dosage: UNK
     Route: 065
     Dates: start: 20241010, end: 20241010
  5. MEFLOQUINE [Suspect]
     Active Substance: MEFLOQUINE
     Dosage: UNK
     Route: 065
     Dates: start: 20241017, end: 20241017
  6. MEFLOQUINE [Suspect]
     Active Substance: MEFLOQUINE
     Dosage: UNK
     Route: 065
     Dates: start: 20241024, end: 20241024
  7. MEFLOQUINE [Suspect]
     Active Substance: MEFLOQUINE
     Dosage: UNK
     Route: 065
     Dates: start: 20241031, end: 20241031
  8. MEFLOQUINE [Suspect]
     Active Substance: MEFLOQUINE
     Dosage: UNK
     Route: 065
     Dates: start: 20241107, end: 20241107

REACTIONS (1)
  - Hepatocellular injury [Recovering/Resolving]

NARRATIVE: CASE EVENT DATE: 20241113
